FAERS Safety Report 21200191 (Version 1)
Quarter: 2022Q3

REPORT INFORMATION
  Report Type: Spontaneous
  Country: US (occurrence: None)
  Receive Date: 20220810
  Receipt Date: 20220810
  Transmission Date: 20221026
  Serious: Yes (Hospitalization)
  Sender: FDA-Public Use
  Company Number: None

PATIENT
  Age: 75 Year
  Sex: Male
  Weight: 81 kg

DRUGS (2)
  1. MAGNESIUM CITRATE [Suspect]
     Active Substance: MAGNESIUM CITRATE
     Indication: Constipation
     Dosage: OTHER QUANTITY : 5 OUNCE(S);?OTHER FREQUENCY : 1 TIME;?
     Route: 048
     Dates: end: 20220417
  2. High blood pressure med [Concomitant]

REACTIONS (4)
  - Muscle spasms [None]
  - Abdominal distension [None]
  - Eating disorder [None]
  - Blood sodium decreased [None]

NARRATIVE: CASE EVENT DATE: 20200414
